FAERS Safety Report 19450909 (Version 3)
Quarter: 2021Q3

REPORT INFORMATION
  Report Type: Spontaneous
  Country: CA (occurrence: CA)
  Receive Date: 20210622
  Receipt Date: 20210827
  Transmission Date: 20211014
  Serious: Yes (Death)
  Sender: FDA-Public Use
  Company Number: CA-CELGENEUS-CAN-20210605787

PATIENT
  Age: 65 Year
  Sex: Female

DRUGS (3)
  1. RUXOLITINIB [Concomitant]
     Active Substance: RUXOLITINIB
     Indication: PRODUCT USED FOR UNKNOWN INDICATION
     Dosage: 30 UNKNOWN
     Route: 048
     Dates: start: 201610, end: 20210611
  2. INREBIC [Suspect]
     Active Substance: FEDRATINIB HYDROCHLORIDE
     Indication: MYELOFIBROSIS
     Dosage: 8.8 MILLIGRAM
     Route: 041
     Dates: start: 20210326, end: 20210530
  3. PREDNISONE. [Concomitant]
     Active Substance: PREDNISONE
     Indication: PRODUCT USED FOR UNKNOWN INDICATION
     Route: 065

REACTIONS (2)
  - Mastocytosis [Fatal]
  - Hypomagnesaemia [Unknown]

NARRATIVE: CASE EVENT DATE: 20210517
